FAERS Safety Report 20226034 (Version 3)
Quarter: 2023Q1

REPORT INFORMATION
  Report Type: Other
  Country: GB (occurrence: None)
  Receive Date: 20211224
  Receipt Date: 20230124
  Transmission Date: 20230418
  Serious: Yes (Death)
  Sender: FDA-Public Use
  Company Number: GB-ROCHE-2960502

PATIENT
  Age: 16 Year
  Sex: Male
  Weight: 41.7 kg

DRUGS (2)
  1. RISDIPLAM [Suspect]
     Active Substance: RISDIPLAM
     Indication: Spinal muscular atrophy
     Dosage: STRENGTH: 0.75MG/ML
     Route: 048
     Dates: start: 20210122
  2. CLARITHROMYCIN [Concomitant]
     Active Substance: CLARITHROMYCIN
     Route: 048

REACTIONS (2)
  - Cardiac arrest [Fatal]
  - Lower respiratory tract infection [Unknown]

NARRATIVE: CASE EVENT DATE: 20211211
